FAERS Safety Report 19970475 (Version 2)
Quarter: 2021Q4

REPORT INFORMATION
  Report Type: Spontaneous
  Country: US (occurrence: US)
  Receive Date: 20211020
  Receipt Date: 20211022
  Transmission Date: 20220304
  Serious: Yes (Other)
  Sender: FDA-Public Use
  Company Number: US-CELGENE-USA-20211003946

PATIENT
  Sex: Male

DRUGS (1)
  1. POMALYST [Suspect]
     Active Substance: POMALIDOMIDE
     Indication: Plasma cell myeloma in remission
     Dosage: 4 MILLIGRAM
     Route: 048
     Dates: start: 202109

REACTIONS (7)
  - Anaemia [Unknown]
  - Renal disorder [Unknown]
  - Liver disorder [Unknown]
  - Feeling abnormal [Unknown]
  - Dehydration [Unknown]
  - Decreased appetite [Unknown]
  - Body temperature decreased [Unknown]

NARRATIVE: CASE EVENT DATE: 20210101
